FAERS Safety Report 17342099 (Version 2)
Quarter: 2020Q1

REPORT INFORMATION
  Report Type: Spontaneous
  Country: US (occurrence: US)
  Receive Date: 20200129
  Receipt Date: 20200306
  Transmission Date: 20200409
  Serious: No
  Sender: FDA-Public Use
  Company Number: US-ASTRAZENECA-2020SE00762

PATIENT
  Age: 64 Year
  Sex: Male
  Weight: 65.3 kg

DRUGS (2)
  1. OLANZAPINE. [Concomitant]
     Active Substance: OLANZAPINE
     Indication: SCHIZOPHRENIA
     Dates: start: 201908
  2. SYMBICORT [Suspect]
     Active Substance: BUDESONIDE\FORMOTEROL FUMARATE DIHYDRATE
     Indication: CHRONIC OBSTRUCTIVE PULMONARY DISEASE
     Dosage: 160MCG/4.5MCG,2 PUFF,TWO TIMES A DAY
     Route: 055
     Dates: start: 2016

REACTIONS (7)
  - Pulmonary congestion [Unknown]
  - Product storage error [Unknown]
  - Dyspnoea [Unknown]
  - Device issue [Unknown]
  - Product cleaning inadequate [Unknown]
  - Intentional device misuse [Unknown]
  - Drug ineffective [Unknown]

NARRATIVE: CASE EVENT DATE: 2016
